FAERS Safety Report 9616189 (Version 2)
Quarter: 2013Q4

REPORT INFORMATION
  Report Type: Spontaneous
  Country: US (occurrence: US)
  Receive Date: 20131011
  Receipt Date: 20131011
  Transmission Date: 20140711
  Serious: No
  Sender: FDA-Public Use
  Company Number: US-PURDUE-USA-2013-0099040

PATIENT
  Age: 56 Year
  Sex: Female

DRUGS (9)
  1. BUTRANS [Suspect]
     Indication: POST LAMINECTOMY SYNDROME
     Dosage: 10 MCG/HR, UNK
     Route: 062
     Dates: start: 20130128
  2. BUTRANS [Suspect]
     Indication: FIBROMYALGIA
  3. VICODIN [Concomitant]
     Indication: POST LAMINECTOMY SYNDROME
     Dosage: 1 TABLET (5/325 MG), DAILY
     Route: 048
  4. VICODIN [Concomitant]
     Indication: FIBROMYALGIA
  5. PROZAC [Concomitant]
     Indication: ANTIDEPRESSANT THERAPY
     Dosage: 60 MG, DAILY
     Route: 048
  6. LORAZEPAM [Concomitant]
     Indication: INSOMNIA
     Dosage: 1 MG, UNK
     Route: 048
  7. PREMPRO [Concomitant]
     Indication: OESTROGEN REPLACEMENT THERAPY
     Dosage: 1 TABLET, DAILY
     Route: 048
  8. AMBIEN [Concomitant]
     Indication: INSOMNIA
     Dosage: 10 MG, HS
     Route: 048
     Dates: start: 2012
  9. KLONOPIN [Concomitant]
     Indication: ANXIETY
     Dosage: 0.5 MG, HS
     Route: 048

REACTIONS (6)
  - Wrong technique in drug usage process [Unknown]
  - Muscle spasms [Not Recovered/Not Resolved]
  - Hot flush [Not Recovered/Not Resolved]
  - Cold sweat [Not Recovered/Not Resolved]
  - Malaise [Not Recovered/Not Resolved]
  - Nausea [Recovered/Resolved]
